FAERS Safety Report 9821359 (Version 3)
Quarter: 2015Q3

REPORT INFORMATION
  Report Type: Spontaneous
  Country: US (occurrence: US)
  Receive Date: 20140116
  Receipt Date: 20150807
  Transmission Date: 20151125
  Serious: Yes (Life-Threatening, Hospitalization)
  Sender: FDA-Public Use
  Company Number: US-GILEAD-2011-0035796

PATIENT
  Age: 63 Year
  Sex: Female
  Weight: 175.54 kg

DRUGS (1)
  1. LETAIRIS [Suspect]
     Active Substance: AMBRISENTAN
     Indication: PRODUCT USED FOR UNKNOWN INDICATION
     Route: 048
     Dates: start: 20090901

REACTIONS (1)
  - Fluid overload [Recovering/Resolving]

NARRATIVE: CASE EVENT DATE: 20101203
